FAERS Safety Report 5360002-8 (Version None)
Quarter: 2007Q2

REPORT INFORMATION
  Report Type: 
  Country: None (occurrence: None)
  Receive Date: 20070618
  Receipt Date: 20070606
  Transmission Date: 20071010
  Serious: Yes (Death)
  Sender: FDA-Public Use
  Company Number: GB-JNJFOC-20070601995

PATIENT
  Age: 34 Year
  Sex: Male

DRUGS (4)
  1. REMICADE [Suspect]
     Indication: BEHCET'S SYNDROME
     Route: 042
  2. MYCOPHENOLATE MOFETIL [Concomitant]
     Indication: BEHCET'S SYNDROME
     Route: 048
  3. PREDNISOLONE [Concomitant]
     Indication: BEHCET'S SYNDROME
     Route: 048
  4. TACROLIMUS [Concomitant]
     Indication: BEHCET'S SYNDROME
     Route: 048

REACTIONS (2)
  - ACUTE RESPIRATORY DISTRESS SYNDROME [None]
  - PNEUMONIA [None]
